FAERS Safety Report 14066137 (Version 1)
Quarter: 2017Q4

REPORT INFORMATION
  Report Type: Spontaneous
  Country: JP (occurrence: JP)
  Receive Date: 20171010
  Receipt Date: 20171010
  Transmission Date: 20180321
  Serious: Yes (Other)
  Sender: FDA-Public Use
  Company Number: GXJP2017JP001570

PATIENT
  Age: 42 Year
  Sex: Male

DRUGS (2)
  1. OXALIPLATIN. [Suspect]
     Active Substance: OXALIPLATIN
     Indication: TESTIS CANCER
     Dosage: UNK
     Route: 065
     Dates: start: 201701
  2. GEMCITABINE [Suspect]
     Active Substance: GEMCITABINE\GEMCITABINE HYDROCHLORIDE
     Indication: TESTIS CANCER
     Dosage: UNK
     Route: 042
     Dates: start: 201701

REACTIONS (6)
  - Pyrexia [Recovering/Resolving]
  - Liver disorder [Recovering/Resolving]
  - Product use in unapproved indication [Unknown]
  - Disseminated intravascular coagulation [Recovering/Resolving]
  - Venoocclusive liver disease [Recovering/Resolving]
  - Acute hepatic failure [Recovering/Resolving]
